FAERS Safety Report 5747990-2 (Version None)
Quarter: 2008Q2

REPORT INFORMATION
  Report Type: 
  Country: None (occurrence: None)
  Receive Date: 20080523
  Receipt Date: 20080516
  Transmission Date: 20081010
  Serious: Yes (Hospitalization)
  Sender: FDA-Public Use
  Company Number: RO-ABBOTT-08P-135-0452569-00

PATIENT
  Age: 56 Year

DRUGS (3)
  1. FENOFIBRATE [Suspect]
     Indication: DYSLIPIDAEMIA
     Route: 048
  2. SIMVASTATIN [Concomitant]
     Indication: DYSLIPIDAEMIA
  3. PRAVASTATIN [Concomitant]
     Indication: DYSLIPIDAEMIA

REACTIONS (3)
  - ACUTE PULMONARY OEDEMA [None]
  - CARDIAC FAILURE [None]
  - ESSENTIAL HYPERTENSION [None]
